FAERS Safety Report 24268949 (Version 1)
Quarter: 2024Q3

REPORT INFORMATION
  Report Type: Spontaneous
  Country: CA (occurrence: CA)
  Receive Date: 20240830
  Receipt Date: 20240830
  Transmission Date: 20241016
  Serious: Yes (Hospitalization)
  Sender: FRESENIUS KABI
  Company Number: CA-FreseniusKabi-FK202413182

PATIENT
  Age: 1 Year
  Sex: Female
  Weight: 9 kg

DRUGS (15)
  1. MESNA [Suspect]
     Active Substance: MESNA
     Indication: Neuroectodermal neoplasm
     Dosage: FORM: SOLUTION; ROUTE: INTRAVENOUS
  2. VINCRISTINE SULFATE [Suspect]
     Active Substance: VINCRISTINE SULFATE
     Indication: Neuroectodermal neoplasm
     Dosage: FORM: SOLUTION, ROUTE: INTRAVENOUS
  3. DOXORUBICIN [Suspect]
     Active Substance: DOXORUBICIN
     Indication: Neuroectodermal neoplasm
     Dosage: FORM: SOLUTION INTRAVENOUS
     Route: 042
  4. DEXRAZOXANE [Suspect]
     Active Substance: DEXRAZOXANE
     Indication: Neuroectodermal neoplasm
     Dosage: FORM: POWDER FOR SOLUTION INTRAVENOUS
     Route: 042
  5. DEXRAZOXANE [Suspect]
     Active Substance: DEXRAZOXANE
     Indication: Chemotherapy cardiotoxicity attenuation
  6. CYCLOPHOSPHAMIDE [Suspect]
     Active Substance: CYCLOPHOSPHAMIDE
     Indication: Neuroectodermal neoplasm
     Dosage: FORM: POWDER FOR SOLUTION INTRAVENOUS
     Route: 042
  7. BACTRIM [Concomitant]
     Active Substance: SULFAMETHOXAZOLE\TRIMETHOPRIM
     Indication: Product used for unknown indication
     Dosage: FORM: NOT SPECIFIED
  8. CHOLECALCIFEROL [Concomitant]
     Active Substance: CHOLECALCIFEROL
     Indication: Product used for unknown indication
     Dosage: FORM: NOT SPECIFIED
  9. EMEND [Concomitant]
     Active Substance: APREPITANT
     Indication: Product used for unknown indication
     Dosage: FORM: CAPSULES
  10. FILGRASTIM [Concomitant]
     Active Substance: FILGRASTIM
     Indication: Product used for unknown indication
  11. LACTULOSE [Concomitant]
     Active Substance: LACTULOSE
     Indication: Product used for unknown indication
     Dosage: FORM: NOT SPECIFIED
  12. MORPHINE [Concomitant]
     Active Substance: MORPHINE
     Indication: Product used for unknown indication
     Dosage: FORM: NOT SPECIFIED
  13. ONDANSETRON [Concomitant]
     Active Substance: ONDANSETRON
     Indication: Product used for unknown indication
     Dosage: FORM: NOT SPECIFIED
  14. PIPERACILLIN SODIUM\TAZOBACTAM SODIUM [Concomitant]
     Active Substance: PIPERACILLIN SODIUM\TAZOBACTAM SODIUM
     Indication: Product used for unknown indication
     Dosage: FORM: NOT SPECIFIED
  15. TRIMETHOPRIM [Concomitant]
     Active Substance: TRIMETHOPRIM
     Indication: Product used for unknown indication
     Dosage: FORM: TABLETS

REACTIONS (1)
  - Febrile neutropenia [Recovered/Resolved]
